FAERS Safety Report 7921233-3 (Version None)
Quarter: 2011Q4

REPORT INFORMATION
  Report Type: 
  Country: None (occurrence: None)
  Receive Date: 20111117
  Receipt Date: 20111115
  Transmission Date: 20120403
  Serious: Yes (Other)
  Sender: FDA-Public Use
  Company Number: US-PFIZER INC-2011280147

PATIENT
  Sex: Female

DRUGS (2)
  1. GEODON [Suspect]
     Indication: MOOD SWINGS
  2. GEODON [Suspect]
     Indication: DEPRESSION
     Dosage: UNK

REACTIONS (2)
  - SWELLING [None]
  - HYPERSENSITIVITY [None]
